FAERS Safety Report 14313083 (Version 1)
Quarter: 2017Q4

REPORT INFORMATION
  Report Type: Spontaneous
  Country: IT (occurrence: IT)
  Receive Date: 20171221
  Receipt Date: 20171221
  Transmission Date: 20180321
  Serious: Yes (Other)
  Sender: FDA-Public Use
  Company Number: IT-AUROBINDO-AUR-APL-2017-45716

PATIENT
  Age: 27 Year
  Sex: Female

DRUGS (4)
  1. LAMIVUDINE AND ZIDOVUDINE [Suspect]
     Active Substance: LAMIVUDINE\ZIDOVUDINE
     Indication: ANTIRETROVIRAL THERAPY
     Dosage: UNK ()
     Dates: start: 20140101, end: 20150501
  2. RALTEGRAVIR POTASSIUM [Suspect]
     Active Substance: RALTEGRAVIR POTASSIUM
     Indication: ANTIRETROVIRAL THERAPY
  3. RALTEGRAVIR POTASSIUM [Suspect]
     Active Substance: RALTEGRAVIR POTASSIUM
     Indication: HIV INFECTION
  4. RALTEGRAVIR POTASSIUM [Suspect]
     Active Substance: RALTEGRAVIR POTASSIUM
     Indication: HEPATITIS B
     Dosage: UNK ()
     Route: 048
     Dates: start: 20140101, end: 20150501

REACTIONS (6)
  - Virologic failure [Unknown]
  - Secondary hypertension [Unknown]
  - Renal failure [Unknown]
  - Chronic kidney disease [Unknown]
  - Renal impairment [Unknown]
  - Drug resistance [Unknown]

NARRATIVE: CASE EVENT DATE: 2014
